FAERS Safety Report 14601002 (Version 1)
Quarter: 2018Q1

REPORT INFORMATION
  Report Type: Spontaneous
  Country: US (occurrence: US)
  Receive Date: 20180304
  Receipt Date: 20180304
  Transmission Date: 20180509
  Serious: No
  Sender: FDA-Public Use
  Company Number: None

PATIENT
  Age: 34 Year
  Sex: Female

DRUGS (1)
  1. MAVYRET [Suspect]
     Active Substance: GLECAPREVIR\PIBRENTASVIR
     Indication: HEPATITIS C
     Dosage: 100MG/40MG 3QD ORAL?02/12/2018?
     Route: 048

REACTIONS (4)
  - Nausea [None]
  - Fatigue [None]
  - Nasopharyngitis [None]
  - Pain [None]

NARRATIVE: CASE EVENT DATE: 20180303
